FAERS Safety Report 7239493-3 (Version None)
Quarter: 2011Q1

REPORT INFORMATION
  Report Type: 
  Country: None (occurrence: None)
  Receive Date: 20110121
  Receipt Date: 20110119
  Transmission Date: 20110831
  Serious: Yes (Death, Hospitalization, Other)
  Sender: FDA-Public Use
  Company Number: US-AMGEN-QUU403620

PATIENT

DRUGS (11)
  1. NPLATE [Suspect]
     Indication: IDIOPATHIC THROMBOCYTOPENIC PURPURA
     Dosage: 820 A?G, UNK
     Dates: start: 20090528, end: 20100127
  2. IMMUNOGLOBULINS [Concomitant]
     Dosage: UNK UNK, UNK
     Route: 042
  3. RITUXIMAB [Concomitant]
     Dosage: 758 MG, UNK
     Dates: start: 20080226
  4. OMEPRAZOLE [Concomitant]
  5. SIMVASTATIN [Concomitant]
  6. GABAPENTIN [Concomitant]
  7. GUAIFENESIN [Concomitant]
  8. ACETAMINOPHEN AND HYDROCODONE BITARTRATE [Concomitant]
  9. LOPINAVIR/RITONAVIR [Concomitant]
  10. ZOLPIDEM TARTRATE [Concomitant]
  11. LEVOTHYROXINE SODIUM [Concomitant]

REACTIONS (23)
  - GINGIVAL BLEEDING [None]
  - RECTAL HAEMORRHAGE [None]
  - EPISTAXIS [None]
  - GASTROENTERITIS [None]
  - ECCHYMOSIS [None]
  - THROMBOCYTOPENIA [None]
  - BONE MARROW RETICULIN FIBROSIS [None]
  - NEUTROPENIA [None]
  - IDIOPATHIC THROMBOCYTOPENIC PURPURA [None]
  - HERPES ZOSTER [None]
  - DEATH [None]
  - ANTI-HBC IGG ANTIBODY POSITIVE [None]
  - HYPOTENSION [None]
  - CONFUSIONAL STATE [None]
  - ARTHRALGIA [None]
  - PETECHIAE [None]
  - ANAEMIA [None]
  - HEPATITIS B [None]
  - THERAPEUTIC RESPONSE DECREASED [None]
  - GASTROINTESTINAL HAEMORRHAGE [None]
  - DRUG HYPERSENSITIVITY [None]
  - FALL [None]
  - HAEMATURIA [None]
